FAERS Safety Report 4730583-3 (Version None)
Quarter: 2005Q3

REPORT INFORMATION
  Report Type: 
  Country: None (occurrence: None)
  Receive Date: 20050725
  Receipt Date: 20050315
  Transmission Date: 20060218
  Serious: No
  Sender: FDA-Public Use
  Company Number: USA050393250

PATIENT
  Age: 4 Year
  Sex: Male
  Weight: 27 kg

DRUGS (1)
  1. STRATTERA [Suspect]
     Indication: DISTURBANCE IN ATTENTION
     Dosage: 25 MG
     Dates: start: 20050101

REACTIONS (4)
  - ANOREXIA [None]
  - CONSTIPATION [None]
  - EAR INFECTION [None]
  - PHARYNGITIS [None]
